FAERS Safety Report 9323113 (Version 4)
Quarter: 2014Q1

REPORT INFORMATION
  Report Type: Spontaneous
  Country: US (occurrence: US)
  Receive Date: 20130603
  Receipt Date: 20140204
  Transmission Date: 20141002
  Serious: Yes (Death, Other)
  Sender: FDA-Public Use
  Company Number: US-BIOGENIDEC-2013BI047230

PATIENT
  Age: 65 Year
  Sex: Female

DRUGS (1)
  1. TYSABRI [Suspect]
     Indication: MULTIPLE SCLEROSIS
     Route: 042
     Dates: start: 20110613, end: 20130311

REACTIONS (4)
  - Death [Fatal]
  - Neoplasm malignant [Not Recovered/Not Resolved]
  - Neoplasm [Not Recovered/Not Resolved]
  - Lung disorder [Not Recovered/Not Resolved]
